FAERS Safety Report 4501263-4 (Version None)
Quarter: 2004Q4

REPORT INFORMATION
  Report Type: 
  Country: None (occurrence: None)
  Receive Date: 20041110
  Receipt Date: 20041023
  Transmission Date: 20050328
  Serious: Yes (Other)
  Sender: FDA-Public Use
  Company Number: 200409644

PATIENT
  Age: 50 Year
  Sex: Female
  Weight: 63.5036 kg

DRUGS (2)
  1. ACULAR [Suspect]
     Indication: HYPERSENSITIVITY
     Dates: start: 20041014, end: 20041014
  2. CLARITIN [Concomitant]

REACTIONS (7)
  - ANGIONEUROTIC OEDEMA [None]
  - BRONCHOSPASM [None]
  - EYELID OEDEMA [None]
  - FLUSHING [None]
  - LACRIMATION INCREASED [None]
  - OCULAR HYPERAEMIA [None]
  - WHEEZING [None]
